FAERS Safety Report 9648908 (Version 4)
Quarter: 2013Q4

REPORT INFORMATION
  Report Type: Spontaneous
  Country: US (occurrence: US)
  Receive Date: 20131028
  Receipt Date: 20131218
  Transmission Date: 20140711
  Serious: Yes (Other)
  Sender: FDA-Public Use
  Company Number: US-PFIZER INC-2013304985

PATIENT
  Sex: Female
  Weight: 58.96 kg

DRUGS (3)
  1. GABAPENTIN [Suspect]
     Dosage: 600 MG, 4X/DAY
     Route: 048
     Dates: start: 2003
  2. MORPHINE SULFATE [Suspect]
     Dosage: UNK
     Route: 048
  3. PERCOCET [Suspect]
     Dosage: UNK

REACTIONS (7)
  - Activities of daily living impaired [Unknown]
  - Gait disturbance [Unknown]
  - Musculoskeletal disorder [Unknown]
  - Hearing impaired [Unknown]
  - Somnolence [Unknown]
  - Neuralgia [Unknown]
  - Weight increased [Unknown]
